FAERS Safety Report 5164351-8 (Version None)
Quarter: 2006Q4

REPORT INFORMATION
  Report Type: 
  Country: None (occurrence: None)
  Receive Date: 20061205
  Receipt Date: 20061128
  Transmission Date: 20070319
  Serious: Yes (Hospitalization)
  Sender: FDA-Public Use
  Company Number: US-BRISTOL-MYERS SQUIBB COMPANY-13591243

PATIENT
  Age: 62 Year
  Sex: Male
  Weight: 84 kg

DRUGS (15)
  1. CARBOPLATIN [Suspect]
     Indication: NON-SMALL CELL LUNG CANCER
     Route: 042
     Dates: start: 20061031, end: 20061031
  2. DOCETAXEL [Suspect]
     Indication: NON-SMALL CELL LUNG CANCER
     Route: 042
     Dates: start: 20061031, end: 20061031
  3. AMBIEN [Concomitant]
     Dates: start: 20060908
  4. ATIVAN [Concomitant]
     Dates: start: 20061009
  5. CELEXA [Concomitant]
     Dates: start: 20060908
  6. COMPAZINE [Concomitant]
     Dates: start: 20061009
  7. DECADRON [Concomitant]
     Dates: start: 20061010
  8. DOCUSATE SODIUM [Concomitant]
     Dates: start: 20061009
  9. SENNA [Concomitant]
     Dates: start: 20061009
  10. FOLATE SODIUM [Concomitant]
     Dates: start: 20061010
  11. HYDROCHLOROTHIAZIDE [Concomitant]
     Dates: start: 20051214
  12. POTASSIUM CHLORIDE [Concomitant]
     Dates: start: 20061010
  13. KEPPRA [Concomitant]
     Dates: start: 20060919
  14. LIPITOR [Concomitant]
     Dates: start: 20060823
  15. NEXIUM [Concomitant]
     Dates: start: 20060908

REACTIONS (3)
  - DIARRHOEA [None]
  - HYPOVOLAEMIA [None]
  - SYNCOPE [None]
